FAERS Safety Report 19263921 (Version 1)
Quarter: 2021Q2

REPORT INFORMATION
  Report Type: Spontaneous
  Country: US (occurrence: US)
  Receive Date: 20210514
  Receipt Date: 20210514
  Transmission Date: 20210717
  Serious: Yes (Death)
  Sender: FDA-Public Use
  Company Number: None

PATIENT
  Age: 71 Year
  Sex: Male
  Weight: 75.48 kg

DRUGS (2)
  1. PROLEUKIN [Suspect]
     Active Substance: ALDESLEUKIN
     Indication: METASTATIC MALIGNANT MELANOMA
     Dosage: ?          OTHER STRENGTH:22000000 UNITS/VIA;?
     Route: 042
     Dates: start: 20210420, end: 20210506
  2. OPDIVO [Suspect]
     Active Substance: NIVOLUMAB
     Indication: METASTATIC MALIGNANT MELANOMA
     Route: 042
     Dates: start: 20210414

REACTIONS (9)
  - Hypoxia [None]
  - Delirium [None]
  - Aspiration [None]
  - Cardio-respiratory arrest [None]
  - Metabolic acidosis [None]
  - Hypotension [None]
  - Atrial fibrillation [None]
  - Apnoea [None]
  - Cardiac arrest [None]

NARRATIVE: CASE EVENT DATE: 20210507
